FAERS Safety Report 4281657-5 (Version None)
Quarter: 2004Q1

REPORT INFORMATION
  Report Type: 
  Country: None (occurrence: None)
  Receive Date: 20040120
  Receipt Date: 20030926
  Transmission Date: 20041129
  Serious: No
  Sender: FDA-Public Use
  Company Number: 2003-09-3638

PATIENT
  Sex: Female

DRUGS (4)
  1. CLARINEX [Suspect]
     Dosage: ORAL
     Route: 048
  2. FLONASE [Concomitant]
  3. ATENOLOL [Concomitant]
  4. FOSAMAX [Concomitant]

REACTIONS (2)
  - INSOMNIA [None]
  - TINNITUS [None]
